FAERS Safety Report 23798933 (Version 1)
Quarter: 2024Q2

REPORT INFORMATION
  Report Type: Spontaneous
  Country: US (occurrence: None)
  Receive Date: 20240427
  Receipt Date: 20240427
  Transmission Date: 20240716
  Serious: Yes (Hospitalization)
  Sender: FDA-Public Use
  Company Number: None

PATIENT
  Age: 73 Year
  Sex: Male
  Weight: 68.04 kg

DRUGS (1)
  1. EMPAGLIFLOZIN [Suspect]
     Active Substance: EMPAGLIFLOZIN
     Dosage: FREQUENCY : DAILY;?
     Route: 048
     Dates: start: 20230207, end: 20230303

REACTIONS (11)
  - Acidosis [None]
  - Fatigue [None]
  - Cough [None]
  - Muscle atrophy [None]
  - Weight decreased [None]
  - Respiratory alkalosis [None]
  - Ketosis [None]
  - Decreased appetite [None]
  - Failure to thrive [None]
  - Neoplasm malignant [None]
  - Neurodegenerative disorder [None]

NARRATIVE: CASE EVENT DATE: 20230306
